FAERS Safety Report 7232112-1 (Version None)
Quarter: 2011Q1

REPORT INFORMATION
  Report Type: 
  Country: None (occurrence: None)
  Receive Date: 20110119
  Receipt Date: 20110110
  Transmission Date: 20110831
  Serious: Yes (Other)
  Sender: FDA-Public Use
  Company Number: US-BIOGENIDEC-2010BI019147

PATIENT
  Sex: Female

DRUGS (3)
  1. TYSABRI [Suspect]
     Indication: MULTIPLE SCLEROSIS
     Route: 042
     Dates: start: 20061020, end: 20091217
  2. TYSABRI [Suspect]
     Route: 042
     Dates: end: 20100201
  3. TYSABRI [Suspect]
     Route: 042
     Dates: start: 20100811

REACTIONS (1)
  - BASAL CELL CARCINOMA [None]
